FAERS Safety Report 9365262 (Version 1)
Quarter: 2013Q2

REPORT INFORMATION
  Report Type: Spontaneous
  Country: SE (occurrence: SE)
  Receive Date: 20130625
  Receipt Date: 20130625
  Transmission Date: 20140414
  Serious: Yes (Hospitalization)
  Sender: FDA-Public Use
  Company Number: SE-009507513-1306SWE008572

PATIENT
  Age: 18 Year
  Sex: Female

DRUGS (2)
  1. NUVARING [Suspect]
     Dosage: 0.120 MG/0.015 MG PER 24 HOURS
     Route: 067
     Dates: start: 20130607, end: 20130612
  2. ALVEDON [Concomitant]

REACTIONS (13)
  - Abasia [Recovering/Resolving]
  - Abnormal faeces [Recovering/Resolving]
  - Pollakiuria [Recovering/Resolving]
  - Pain [Recovering/Resolving]
  - Vulvovaginal dryness [Recovering/Resolving]
  - Dysmenorrhoea [Recovering/Resolving]
  - Vulvovaginal burning sensation [Recovering/Resolving]
  - Presyncope [Recovering/Resolving]
  - Abdominal pain lower [Recovering/Resolving]
  - Nausea [Recovering/Resolving]
  - Fatigue [Recovering/Resolving]
  - Breast tenderness [Recovering/Resolving]
  - Dizziness [Recovering/Resolving]
